FAERS Safety Report 15610023 (Version 3)
Quarter: 2018Q4

REPORT INFORMATION
  Report Type: Spontaneous
  Country: US (occurrence: US)
  Receive Date: 20181113
  Receipt Date: 20181231
  Transmission Date: 20190205
  Serious: Yes (Other)
  Sender: FDA-Public Use
  Company Number: US-PFIZER INC-2018466349

PATIENT
  Age: 46 Year
  Sex: Female
  Weight: 73 kg

DRUGS (3)
  1. FLUOCINONIDE. [Concomitant]
     Active Substance: FLUOCINONIDE
     Indication: SKIN DISORDER
     Dosage: UNK UNK, AS NEEDED
     Dates: start: 20170307
  2. EUCRISA [Suspect]
     Active Substance: CRISABOROLE
     Indication: DERMATITIS ATOPIC
     Dosage: UNK UNK, 2X/DAY
     Route: 061
     Dates: start: 20180927, end: 20181023
  3. DESONIDE. [Concomitant]
     Active Substance: DESONIDE
     Indication: PERIORAL DERMATITIS
     Dosage: UNK UNK, AS NEEDED
     Dates: start: 20150929

REACTIONS (1)
  - Eczema herpeticum [Unknown]

NARRATIVE: CASE EVENT DATE: 201810
